FAERS Safety Report 7516052-6 (Version None)
Quarter: 2011Q2

REPORT INFORMATION
  Report Type: 
  Country: None (occurrence: None)
  Receive Date: 20110520
  Receipt Date: 20110506
  Transmission Date: 20111010
  Serious: Yes (Death, Hospitalization)
  Sender: FDA-Public Use
  Company Number: UTC-006916

PATIENT
  Age: 55 Year
  Sex: Male

DRUGS (2)
  1. DIURETICS (DIURETICS) [Concomitant]
  2. REMODULIN [Suspect]
     Indication: PORTOPULMONARY HYPERTENSION
     Dosage: 0.007 UG/KG, INTRAVENOUS
     Route: 042
     Dates: start: 20110121

REACTIONS (2)
  - RENAL FAILURE [None]
  - FATIGUE [None]
